FAERS Safety Report 5520307-4 (Version None)
Quarter: 2007Q4

REPORT INFORMATION
  Report Type: 
  Country: None (occurrence: None)
  Receive Date: 20071119
  Receipt Date: 20071114
  Transmission Date: 20080405
  Serious: Yes (Hospitalization, Other)
  Sender: FDA-Public Use
  Company Number: JP-BRISTOL-MYERS SQUIBB COMPANY-13876412

PATIENT
  Age: 38 Year
  Sex: Male

DRUGS (5)
  1. TAXOL [Suspect]
     Indication: NON-SMALL CELL LUNG CANCER
     Dosage: ALSO, 360MG?1/1DAY FROM UNK TO 12JUN2007.
     Route: 041
  2. TAXOL [Suspect]
     Indication: LARGE CELL CARCINOMA OF THE RESPIRATORY TRACT STAGE UNSPECIFIED
     Dosage: ALSO, 360MG?1/1DAY FROM UNK TO 12JUN2007.
     Route: 041
  3. PARAPLATIN [Suspect]
     Indication: NON-SMALL CELL LUNG CANCER
     Dosage: ALSO, 850MG?1/1DAY FROM UNK TO 12JUNE2007.
     Route: 041
  4. PARAPLATIN [Suspect]
     Indication: LARGE CELL CARCINOMA OF THE RESPIRATORY TRACT STAGE UNSPECIFIED
     Dosage: ALSO, 850MG?1/1DAY FROM UNK TO 12JUNE2007.
     Route: 041
  5. OMEPRAL [Suspect]
     Route: 065

REACTIONS (3)
  - ARTHRALGIA [None]
  - LIVER DISORDER [None]
  - RENAL DISORDER [None]
